FAERS Safety Report 4775611-4 (Version None)
Quarter: 2005Q3

REPORT INFORMATION
  Report Type: 
  Country: None (occurrence: None)
  Receive Date: 20050920
  Receipt Date: 20050907
  Transmission Date: 20060218
  Serious: Yes (Hospitalization, Other)
  Sender: FDA-Public Use
  Company Number: 163-20785-05090207

PATIENT
  Age: 57 Year
  Sex: Male

DRUGS (9)
  1. THALOMID [Suspect]
     Indication: METASTATIC MALIGNANT MELANOMA
     Dosage: 400 MG, QD, ORAL
     Route: 048
  2. INTERLEUKIN-2 (INTERLEUKIN-2) [Suspect]
     Indication: METASTATIC MALIGNANT MELANOMA
     Dosage: 600000 IU/KG, RECEIVED 10 DOSES
  3. PHENYTOIN [Suspect]
  4. RADIATION THERAPY [Suspect]
     Indication: METASTATIC MALIGNANT MELANOMA
  5. TEMOZOLOMIDE (TEMOZOLOMIDE) [Suspect]
     Indication: METASTATIC MALIGNANT MELANOMA
  6. PACLITAXEL [Suspect]
     Indication: METASTATIC MALIGNANT MELANOMA
     Dosage: 60 MG/M2/9 DOSES
  7. VENLAFAXINE HCL [Suspect]
  8. DEXAMETHASONE [Suspect]
  9. LEVETIRACETAM [Suspect]

REACTIONS (14)
  - ASTHENIA [None]
  - BLOOD BILIRUBIN INCREASED [None]
  - CONVULSION [None]
  - DIFFICULTY IN WALKING [None]
  - DISEASE PROGRESSION [None]
  - HAEMOLYTIC URAEMIC SYNDROME [None]
  - HYPOTENSION [None]
  - LETHARGY [None]
  - MICROANGIOPATHIC HAEMOLYTIC ANAEMIA [None]
  - NEUROLOGICAL SYMPTOM [None]
  - PARTIAL SEIZURES [None]
  - RENAL FAILURE [None]
  - THROMBOTIC THROMBOCYTOPENIC PURPURA [None]
  - WHITE BLOOD CELL COUNT DECREASED [None]
